FAERS Safety Report 5982058-1 (Version None)
Quarter: 2008Q4

REPORT INFORMATION
  Report Type: 
  Country: None (occurrence: None)
  Receive Date: 20081202
  Receipt Date: 20081118
  Transmission Date: 20090506
  Serious: Yes (Hospitalization)
  Sender: FDA-Public Use
  Company Number: KV200800298

PATIENT
  Age: 84 Year
  Sex: Female
  Weight: 67.1 kg

DRUGS (4)
  1. PROPAFENONE HCL [Suspect]
     Indication: DRUG USE FOR UNKNOWN INDICATION
     Dosage: 150 MG, ONE TAB, TID,ORAL
     Route: 048
     Dates: start: 20080913
  2. LOVASTATIN [Concomitant]
  3. LOPRESSOR [Concomitant]
  4. PRILOSEC [Concomitant]

REACTIONS (5)
  - ARRHYTHMIA [None]
  - ASTHENIA [None]
  - BLOOD SODIUM DECREASED [None]
  - FATIGUE [None]
  - PRODUCT QUALITY ISSUE [None]
